FAERS Safety Report 14662320 (Version 2)
Quarter: 2018Q3

REPORT INFORMATION
  Report Type: Spontaneous
  Country: US (occurrence: US)
  Receive Date: 20180321
  Receipt Date: 20180925
  Transmission Date: 20181010
  Serious: Yes (Other)
  Sender: FDA-Public Use
  Company Number: US-ASTRAZENECA-2018SE33711

PATIENT
  Age: 65 Year
  Sex: Female
  Weight: 88 kg

DRUGS (41)
  1. LANSOPRAZOLE. [Suspect]
     Active Substance: LANSOPRAZOLE
     Indication: GASTROOESOPHAGEAL REFLUX DISEASE
     Route: 065
     Dates: start: 20100914
  2. METHOTREXATE. [Concomitant]
     Active Substance: METHOTREXATE
     Indication: IMMUNOSUPPRESSION
     Dosage: 2.5 MG
     Route: 065
     Dates: start: 2010, end: 2015
  3. LISINOPRIL. [Concomitant]
     Active Substance: LISINOPRIL
     Indication: BLOOD PRESSURE MEASUREMENT
     Dosage: 20 MG
     Route: 065
     Dates: start: 2014, end: 2015
  4. PROLIA [Concomitant]
     Active Substance: DENOSUMAB
     Dosage: 60 MG SUBQ EVERY 6 MONTHS
     Route: 058
     Dates: start: 20160608
  5. ONDANSETRON HYDROCHLORIDE. [Concomitant]
     Active Substance: ONDANSETRON HYDROCHLORIDE
     Dosage: 8 MG
     Route: 048
     Dates: start: 20150116
  6. FOLIC ACID. [Concomitant]
     Active Substance: FOLIC ACID
     Indication: ANAEMIA
     Route: 065
     Dates: start: 2010, end: 2015
  7. PRAVASTATIN. [Concomitant]
     Active Substance: PRAVASTATIN
     Indication: BLOOD CHOLESTEROL
     Route: 065
     Dates: start: 2011, end: 2013
  8. PEPCID AC (OTC) [Concomitant]
     Dates: start: 1993, end: 1994
  9. ZANTAC 150 (OTC) [Concomitant]
     Dates: start: 1993, end: 1994
  10. PLAVIX [Concomitant]
     Active Substance: CLOPIDOGREL BISULFATE
     Indication: CARDIAC DISORDER
     Route: 065
     Dates: start: 2010, end: 2016
  11. HYDRO?APAP [Concomitant]
     Indication: PAIN
     Route: 065
     Dates: start: 2011, end: 2016
  12. RANITIDINE. [Concomitant]
     Active Substance: RANITIDINE
     Indication: GASTROOESOPHAGEAL REFLUX DISEASE
     Route: 065
     Dates: start: 2016
  13. CARVEDILOL. [Concomitant]
     Active Substance: CARVEDILOL
     Indication: BLOOD PRESSURE MEASUREMENT
     Route: 048
     Dates: start: 2015, end: 2016
  14. CALCIUM [Concomitant]
     Active Substance: CALCIUM
     Dosage: 600 BID
     Route: 048
     Dates: start: 20150407
  15. PREDNISONE. [Concomitant]
     Active Substance: PREDNISONE
     Dosage: 20 MG
     Route: 048
     Dates: start: 20150109
  16. NEXIUM [Suspect]
     Active Substance: ESOMEPRAZOLE MAGNESIUM
     Indication: GASTROOESOPHAGEAL REFLUX DISEASE
     Route: 048
     Dates: start: 2010, end: 2014
  17. NEXIUM [Suspect]
     Active Substance: ESOMEPRAZOLE MAGNESIUM
     Indication: GASTROOESOPHAGEAL REFLUX DISEASE
     Route: 048
     Dates: start: 20140228
  18. NEXIUM 24HR [Suspect]
     Active Substance: ESOMEPRAZOLE MAGNESIUM
     Indication: GASTROOESOPHAGEAL REFLUX DISEASE
     Route: 048
     Dates: start: 2015
  19. PROTONIX [Suspect]
     Active Substance: PANTOPRAZOLE SODIUM
     Indication: GASTROOESOPHAGEAL REFLUX DISEASE
     Route: 065
  20. KLOR?CON [Concomitant]
     Active Substance: POTASSIUM CHLORIDE
     Indication: HYPOKALAEMIA
     Route: 048
     Dates: start: 2010, end: 2015
  21. HYDRALAZINE [Concomitant]
     Active Substance: HYDRALAZINE HYDROCHLORIDE
     Indication: BLOOD PRESSURE MEASUREMENT
     Route: 065
     Dates: start: 2013, end: 2016
  22. MAGNESIA [Concomitant]
     Active Substance: MAGNESIUM HYDROXIDE
     Dosage: AS NEEDED
  23. AMOXICILLIN. [Concomitant]
     Active Substance: AMOXICILLIN
     Dosage: 500 MG
     Route: 048
     Dates: start: 20140919
  24. NEXIUM [Suspect]
     Active Substance: ESOMEPRAZOLE MAGNESIUM
     Indication: GASTROOESOPHAGEAL REFLUX DISEASE
     Route: 048
     Dates: start: 20100326
  25. CYCLOBENZAPRINE. [Concomitant]
     Active Substance: CYCLOBENZAPRINE
     Route: 048
     Dates: start: 20151117
  26. HYDROXYCHLOROQUINE [Concomitant]
     Active Substance: HYDROXYCHLOROQUINE
     Route: 048
     Dates: start: 20160225
  27. TRAZODONE [Concomitant]
     Active Substance: TRAZODONE HYDROCHLORIDE
     Dosage: 50 MG
     Route: 048
     Dates: start: 20140425
  28. NEXIUM [Suspect]
     Active Substance: ESOMEPRAZOLE MAGNESIUM
     Indication: GASTROOESOPHAGEAL REFLUX DISEASE
     Dosage: GENERIC
     Route: 065
  29. LANSOPRAZOLE. [Suspect]
     Active Substance: LANSOPRAZOLE
     Indication: GASTROOESOPHAGEAL REFLUX DISEASE
     Route: 065
     Dates: start: 2010
  30. AMITIZA [Concomitant]
     Active Substance: LUBIPROSTONE
     Indication: LAXATIVE SUPPORTIVE CARE
     Route: 065
     Dates: start: 2010, end: 2014
  31. PRILOSEC [Suspect]
     Active Substance: OMEPRAZOLE MAGNESIUM
     Route: 048
  32. FUROSEMIDE. [Concomitant]
     Active Substance: FUROSEMIDE
     Indication: FLUID RETENTION
     Route: 048
     Dates: start: 2015, end: 2016
  33. AMLODIPINE [Concomitant]
     Active Substance: AMLODIPINE BESYLATE
     Indication: BLOOD PRESSURE MEASUREMENT
     Route: 065
     Dates: start: 2010, end: 2016
  34. PEPTO?BISMOL [Concomitant]
     Active Substance: BISMUTH SUBSALICYLATE
     Dosage: AS NEEDED
  35. DOXYCYCLINE HYCLATE. [Concomitant]
     Active Substance: DOXYCYCLINE HYCLATE
     Dosage: 100 MG
     Route: 048
     Dates: start: 20140926
  36. PHENOBARBITAL. [Concomitant]
     Active Substance: PHENOBARBITAL
     Indication: SEDATIVE THERAPY
     Dosage: 32.4 MG
     Route: 065
     Dates: start: 2010, end: 2016
  37. CLONIDINE. [Concomitant]
     Active Substance: CLONIDINE
     Indication: SEDATIVE THERAPY
     Route: 065
     Dates: start: 2015, end: 2016
  38. CLONIDINE. [Concomitant]
     Active Substance: CLONIDINE
     Indication: HYPERTENSION
     Route: 065
     Dates: start: 2015, end: 2016
  39. AZITHROMYCIN ANHYDROUS. [Concomitant]
     Active Substance: AZITHROMYCIN ANHYDROUS
     Indication: INFECTION
     Dosage: 250 MG
     Route: 065
     Dates: start: 2010, end: 2014
  40. GABAPENTIN. [Concomitant]
     Active Substance: GABAPENTIN
     Indication: NEURALGIA
     Route: 065
     Dates: start: 2013, end: 2016
  41. MAALOX ANTACID [Concomitant]
     Active Substance: ALUMINUM HYDROXIDE\DIMETHICONE\MAGNESIUM HYDROXIDE
     Dosage: AS NEEDED

REACTIONS (2)
  - Nephropathy [Unknown]
  - Chronic kidney disease [Not Recovered/Not Resolved]

NARRATIVE: CASE EVENT DATE: 2015
